FAERS Safety Report 7933601-4 (Version None)
Quarter: 2011Q4

REPORT INFORMATION
  Report Type: 
  Country: None (occurrence: None)
  Receive Date: 20111122
  Receipt Date: 20111110
  Transmission Date: 20120403
  Serious: Yes (Death)
  Sender: FDA-Public Use
  Company Number: GB-ROCHE-1008087

PATIENT
  Sex: Female

DRUGS (6)
  1. ATORVASTATIN [Concomitant]
     Dates: start: 20071227
  2. WARFARIN SODIUM [Concomitant]
     Dates: start: 20100506
  3. ADALAT [Concomitant]
     Dates: start: 19980204
  4. RAMIPRIL [Concomitant]
     Dates: start: 20090406
  5. DIGOXIN [Concomitant]
     Dates: start: 20091207
  6. LUCENTIS [Suspect]
     Indication: AGE-RELATED MACULAR DEGENERATION
     Route: 050
     Dates: start: 20110325

REACTIONS (1)
  - CEREBRAL HAEMORRHAGE [None]
